FAERS Safety Report 4489978-8 (Version None)
Quarter: 2004Q4

REPORT INFORMATION
  Report Type: 
  Country: None (occurrence: None)
  Receive Date: 20041101
  Receipt Date: 20041021
  Transmission Date: 20050328
  Serious: Yes (Other)
  Sender: FDA-Public Use
  Company Number: CH-GLAXOSMITHKLINE-B0349665A

PATIENT
  Age: 36 Year
  Sex: Female

DRUGS (7)
  1. COMBIVIR [Suspect]
     Indication: HIV INFECTION
     Dosage: 150MG TWICE PER DAY
  2. STOCRIN [Suspect]
     Indication: HIV INFECTION
     Dosage: 3U PER DAY
  3. POTASSIUM SULPHATE [Suspect]
     Indication: ANXIETY DISORDER
     Dosage: 4.5U PER DAY
  4. TEGRETOL [Suspect]
     Indication: ANXIETY DISORDER
     Dosage: 400MG TWICE PER DAY
  5. PRAZINE [Suspect]
     Indication: ANXIETY DISORDER
     Dosage: 100MG PER DAY
  6. ZOLOFT [Suspect]
     Indication: ANXIETY DISORDER
     Dosage: 250MG PER DAY
  7. HUMALOG [Concomitant]

REACTIONS (1)
  - CUSHING'S SYNDROME [None]
